FAERS Safety Report 12838202 (Version 3)
Quarter: 2016Q4

REPORT INFORMATION
  Report Type: Spontaneous
  Country: JP (occurrence: JP)
  Receive Date: 20161012
  Receipt Date: 20161209
  Transmission Date: 20170207
  Serious: Yes (Hospitalization)
  Sender: FDA-Public Use
  Company Number: PHJP2016JP028588

PATIENT
  Age: 67 Year
  Sex: Male

DRUGS (1)
  1. NEORAL [Suspect]
     Active Substance: CYCLOSPORINE
     Indication: INTERSTITIAL LUNG DISEASE
     Dosage: 100 MG, QD
     Route: 048

REACTIONS (3)
  - Dyspnoea [Recovering/Resolving]
  - Product use issue [Unknown]
  - Immunosuppressant drug level decreased [Unknown]
